FAERS Safety Report 4877205-9 (Version None)
Quarter: 2005Q4

REPORT INFORMATION
  Report Type: 
  Country: None (occurrence: None)
  Receive Date: 20051206
  Receipt Date: 20050927
  Transmission Date: 20060501
  Serious: No
  Sender: FDA-Public Use
  Company Number: USA0509109283

PATIENT
  Age: 57 Year
  Sex: Female

DRUGS (1)
  1. CYMBALTA [Suspect]
     Indication: DEPRESSION
     Dosage: 30 MG / 1 DAY
     Dates: start: 20041201, end: 20050501

REACTIONS (1)
  - GASTRIC DISORDER [None]
